FAERS Safety Report 8561746 (Version 6)
Quarter: 2013Q4

REPORT INFORMATION
  Report Type: Spontaneous
  Country: US (occurrence: US)
  Receive Date: 20120515
  Receipt Date: 20131021
  Transmission Date: 20140711
  Serious: Yes (Hospitalization, Other)
  Sender: FDA-Public Use
  Company Number: US-PFIZER INC-2012116931

PATIENT
  Age: 65 Year
  Sex: Female
  Weight: 70 kg

DRUGS (10)
  1. CELEBREX [Suspect]
     Indication: OSTEOARTHRITIS
     Dosage: 200 MG, ONCE A DAY
     Route: 048
  2. CELEBREX [Suspect]
     Indication: BACK PAIN
  3. MELOXICAM [Suspect]
     Indication: ARTHRITIS
     Dosage: 50 MG, DAILY
     Dates: start: 2011
  4. CLONIDINE [Concomitant]
     Indication: HYPERTENSION
     Dosage: 0.2 MG, 2X/DAY
  5. ATENOLOL [Concomitant]
     Indication: HYPERTENSION
     Dosage: 50 MG, DAILY
  6. LISINOPRIL [Concomitant]
     Indication: HYPERTENSION
     Dosage: 40 MG, DAILY
  7. XANAX [Concomitant]
     Indication: PANIC ATTACK
     Dosage: UNK
  8. SYNTHROID [Concomitant]
     Indication: THYROID DISORDER
     Dosage: UNK
  9. PREMARIN [Concomitant]
     Dosage: UNK
  10. MEDROXYPROGESTERONE [Concomitant]
     Dosage: UNK

REACTIONS (11)
  - Urethral prolapse [Unknown]
  - Bladder prolapse [Unknown]
  - Sciatica [Unknown]
  - Dysuria [Unknown]
  - Device leakage [Recovering/Resolving]
  - Gastrointestinal disorder [Unknown]
  - Drug ineffective [Unknown]
  - Pain [Not Recovered/Not Resolved]
  - Arthralgia [Not Recovered/Not Resolved]
  - Joint swelling [Not Recovered/Not Resolved]
  - Back pain [Not Recovered/Not Resolved]
